FAERS Safety Report 9217893 (Version 1)
Quarter: 2013Q2

REPORT INFORMATION
  Report Type: Report from Study
  Country: KR (occurrence: KR)
  Receive Date: 20130408
  Receipt Date: 20130408
  Transmission Date: 20140414
  Serious: Yes (Other)
  Sender: FDA-Public Use
  Company Number: KR-NAPPMUNDI-GBR-2013-0013604

PATIENT
  Age: 53 Year
  Sex: Female

DRUGS (7)
  1. OXYCODONE [Suspect]
     Indication: CANCER PAIN
     Dosage: UNK
     Route: 048
     Dates: start: 20111109
  2. HYDROMORPHONE HCL [Concomitant]
     Dosage: UNK
     Dates: start: 20111019
  3. HYDROMORPHONE HCL [Concomitant]
     Dosage: UNK
     Dates: start: 20110907
  4. FENTANYL CITRATE [Concomitant]
     Dosage: UNK
     Dates: start: 20111019
  5. PREDNISOLONE [Concomitant]
     Dosage: UNK
     Dates: start: 20111109
  6. GABAPENTIN [Concomitant]
     Dosage: UNK
     Dates: start: 20111109
  7. DEXAMETHASONE [Concomitant]
     Dosage: UNK
     Dates: start: 20111109

REACTIONS (3)
  - Delirium [Unknown]
  - Myoclonus [Unknown]
  - Urinary retention [Unknown]
